FAERS Safety Report 8415923-6 (Version None)
Quarter: 2012Q2

REPORT INFORMATION
  Report Type: 
  Country: None (occurrence: None)
  Receive Date: 20120606
  Receipt Date: 20120531
  Transmission Date: 20120825
  Serious: Yes (Hospitalization)
  Sender: FDA-Public Use
  Company Number: US-TEVA-340934USA

PATIENT
  Sex: Male
  Weight: 106.4 kg

DRUGS (11)
  1. CIPROFLOXACIN [Concomitant]
     Dosage: BID
     Route: 048
  2. DOCUSATE [Concomitant]
     Indication: CONSTIPATION
     Dosage: BID
     Route: 048
  3. ALBUTEROL [Concomitant]
     Dosage: 2 PUFFS Q4H PRN
  4. FLUCONAZOLE [Concomitant]
     Dosage: 200 MILLIGRAM;
     Route: 048
  5. ROSUVASTATIN [Concomitant]
     Dosage: QHS
     Route: 048
  6. OXYCODONE HYDROCHLORIDE [Concomitant]
     Indication: PAIN
     Dosage: Q 4-6H
  7. ACYCLOVIR [Concomitant]
     Dosage: BID
     Route: 048
  8. EZETIMIBE [Concomitant]
     Dosage: QHS
     Route: 048
  9. SENNA ALEXANDRINA [Concomitant]
     Indication: CONSTIPATION
  10. TREANDA [Suspect]
     Indication: ACUTE MYELOID LEUKAEMIA
     Route: 042
     Dates: start: 20120514
  11. IDARUBICIN HCL [Suspect]
     Indication: ACUTE MYELOID LEUKAEMIA
     Route: 042
     Dates: start: 20120514

REACTIONS (1)
  - FEBRILE NEUTROPENIA [None]
